FAERS Safety Report 7978983-2 (Version None)
Quarter: 2011Q4

REPORT INFORMATION
  Report Type: 
  Country: None (occurrence: None)
  Receive Date: 20111214
  Receipt Date: 20111207
  Transmission Date: 20120403
  Serious: No
  Sender: FDA-Public Use
  Company Number: JP-PFIZER INC-2011254375

PATIENT
  Age: 69 Year
  Sex: Female

DRUGS (3)
  1. LEVOFLOXACIN [Concomitant]
     Indication: ANTIBIOTIC PROPHYLAXIS
     Dosage: 1 GTT, 3X/DAY
     Route: 047
     Dates: start: 20100201
  2. XALATAN [Suspect]
     Indication: NORMAL TENSION GLAUCOMA
     Dosage: 1 GTT, 1X/DAY
     Route: 047
     Dates: start: 20091210
  3. FLUOROMETHOLONE [Concomitant]
     Indication: ANTIINFLAMMATORY THERAPY
     Dosage: 1 GTT, 3X/DAY
     Route: 047
     Dates: start: 20100201

REACTIONS (1)
  - TELANGIECTASIA [None]
